FAERS Safety Report 24611578 (Version 1)
Quarter: 2024Q4

REPORT INFORMATION
  Report Type: Spontaneous
  Country: ZA (occurrence: ZA)
  Receive Date: 20241113
  Receipt Date: 20241113
  Transmission Date: 20250114
  Serious: Yes (Other)
  Sender: NOVARTIS
  Company Number: ZA-002147023-NVSC2024ZA215797

PATIENT
  Sex: Male

DRUGS (1)
  1. TEGRETOL [Suspect]
     Active Substance: CARBAMAZEPINE
     Indication: Epilepsy
     Dosage: UNK, BID (HALF OF A 200MG TABLET, ONE AND A HALF TABLETS TWICE A DAY)
     Route: 065

REACTIONS (2)
  - Seizure [Unknown]
  - Wrong technique in product usage process [Unknown]
